FAERS Safety Report 6552004-0 (Version None)
Quarter: 2009Q4

REPORT INFORMATION
  Report Type: 
  Country: None (occurrence: None)
  Receive Date: 20091215
  Receipt Date: 20090129
  Transmission Date: 20100525
  Serious: Yes (Other)
  Sender: FDA-Public Use
  Company Number: FEI2009-0189

PATIENT
  Age: 44 Year
  Sex: Female

DRUGS (3)
  1. PARAGARD T 380A [Suspect]
     Indication: CONTRACEPTION
     Dosage: INTRA CORPUS CAVERNOSUM
     Route: 011
     Dates: start: 19960101, end: 20081230
  2. PARAGARD T 380A [Suspect]
     Indication: CONTRACEPTION
     Dosage: INTRA CORPUS CAVERNOSUM
     Route: 011
     Dates: start: 20090126, end: 20090126
  3. UNSPECIFIED THYROID MEDICATIONS [Concomitant]

REACTIONS (1)
  - MEDICAL DEVICE COMPLICATION [None]
